FAERS Safety Report 5401088-1 (Version None)
Quarter: 2007Q3

REPORT INFORMATION
  Report Type: 
  Country: None (occurrence: None)
  Receive Date: 20070726
  Receipt Date: 20070713
  Transmission Date: 20080115
  Serious: Yes (Other)
  Sender: FDA-Public Use
  Company Number: 8021786

PATIENT
  Age: 31 Year
  Sex: Female

DRUGS (3)
  1. KEPPRA [Suspect]
     Indication: EPILEPSY
     Dosage: 2000 MG/D
     Dates: start: 20050101
  2. PRENATAL VITAMINS [Concomitant]
  3. FOLIC ACID [Concomitant]

REACTIONS (6)
  - CAESAREAN SECTION [None]
  - DRUG EXPOSURE DURING PREGNANCY [None]
  - DRUG EXPOSURE VIA BREAST MILK [None]
  - PREMATURE BABY [None]
  - UMBILICAL CORD ABNORMALITY [None]
  - VASA PRAEVIA [None]
